FAERS Safety Report 9470879 (Version 3)
Quarter: 2013Q3

REPORT INFORMATION
  Report Type: Spontaneous
  Country: US (occurrence: US)
  Receive Date: 20130822
  Receipt Date: 20130916
  Transmission Date: 20140515
  Serious: No
  Sender: FDA-Public Use
  Company Number: US-PFIZER INC-2013238789

PATIENT
  Age: 90 Year
  Sex: Male
  Weight: 73 kg

DRUGS (6)
  1. PHOSPHOLINE IODIDE [Suspect]
     Indication: GLAUCOMA
     Dosage: ONE GTT BOTH EYES, BID
     Route: 047
     Dates: start: 201005, end: 201308
  2. PHOSPHOLINE IODIDE [Suspect]
     Indication: INTRAOCULAR PRESSURE TEST ABNORMAL
     Dosage: ONE GTT BOTH EYES, BID
     Route: 047
     Dates: start: 20130823
  3. TIMOLOL GFS [Concomitant]
     Dosage: ONE GTT  QD
     Route: 047
  4. BRIMONIDINE [Concomitant]
     Dosage: ONE GTT, BID
     Route: 047
  5. LUMIGAN [Concomitant]
     Dosage: ONE GTT HS
     Route: 047
  6. ZOPITAN [Concomitant]
     Dosage: ONE GTT HS IN RIGHT EYE (OD)
     Route: 047

REACTIONS (3)
  - Intraocular pressure increased [Recovered/Resolved]
  - Drug ineffective [Recovered/Resolved]
  - Product quality issue [Unknown]
